FAERS Safety Report 7824131-9 (Version None)
Quarter: 2011Q4

REPORT INFORMATION
  Report Type: 
  Country: None (occurrence: None)
  Receive Date: 20111019
  Receipt Date: 20111017
  Transmission Date: 20120403
  Serious: Yes (Other)
  Sender: FDA-Public Use
  Company Number: US-PFIZER INC-2011248340

PATIENT
  Sex: Male
  Weight: 77.098 kg

DRUGS (1)
  1. IBUPROFEN (ADVIL) [Suspect]
     Indication: MUSCULOSKELETAL STIFFNESS
     Dosage: 200 MG, DAILY
     Route: 048
     Dates: start: 20111005, end: 20111001

REACTIONS (2)
  - CHROMATURIA [None]
  - BLOOD URINE PRESENT [None]
